FAERS Safety Report 8404656-8 (Version None)
Quarter: 2012Q2

REPORT INFORMATION
  Report Type: 
  Country: None (occurrence: None)
  Receive Date: 20120601
  Receipt Date: 20111221
  Transmission Date: 20120825
  Serious: No
  Sender: FDA-Public Use
  Company Number: US-NOVEN-11US003829

PATIENT
  Sex: Male
  Weight: 56.689 kg

DRUGS (4)
  1. MELATONIN [Concomitant]
     Indication: INSOMNIA
     Route: 048
  2. DAYTRANA [Suspect]
     Indication: ATTENTION DEFICIT/HYPERACTIVITY DISORDER
     Dosage: 30 MG, QD
     Route: 062
     Dates: start: 20110301
  3. DAYTRANA [Suspect]
     Dosage: UNK
  4. SAM-E [Concomitant]
     Indication: INSOMNIA
     Route: 048

REACTIONS (4)
  - GROWTH RETARDATION [None]
  - INCORRECT DRUG ADMINISTRATION DURATION [None]
  - PRODUCT QUALITY ISSUE [None]
  - DRUG INEFFECTIVE [None]
